FAERS Safety Report 16348442 (Version 1)
Quarter: 2019Q2

REPORT INFORMATION
  Report Type: Spontaneous
  Country: DE (occurrence: DE)
  Receive Date: 20190523
  Receipt Date: 20190523
  Transmission Date: 20190711
  Serious: Yes (Other)
  Sender: FDA-Public Use
  Company Number: PHHY2019DE115645

PATIENT
  Age: 28 Year
  Sex: Female

DRUGS (3)
  1. ALPHA-METHYLDOPA [Suspect]
     Active Substance: METHYLDOPA
     Indication: HYPERTENSION
     Dosage: 250 MG, TID
     Route: 065
  2. MAGNESIUM SULPHATE [Suspect]
     Active Substance: MAGNESIUM SULFATE
     Indication: PRODUCT USED FOR UNKNOWN INDICATION
     Dosage: UNK
     Route: 042
  3. ACETYLSALICYLIC ACID [Suspect]
     Active Substance: ASPIRIN
     Indication: PROPHYLAXIS
     Dosage: 100 MG, UNK
     Route: 065

REACTIONS (4)
  - Platelet count decreased [Unknown]
  - Premature delivery [Unknown]
  - Blood pressure increased [Unknown]
  - Maternal exposure during pregnancy [Unknown]
